FAERS Safety Report 5296442-5 (Version None)
Quarter: 2007Q2

REPORT INFORMATION
  Report Type: 
  Country: None (occurrence: None)
  Receive Date: 20070413
  Receipt Date: 20070402
  Transmission Date: 20071010
  Serious: Yes (Other)
  Sender: FDA-Public Use
  Company Number: PHEH2007US04253

PATIENT
  Age: 83 Year

DRUGS (2)
  1. LOTREL [Suspect]
     Dosage: 10/20 MG, QD
     Route: 048
  2. PLAVIX [Suspect]
     Dosage: 75 MG, QD
     Route: 048

REACTIONS (1)
  - WEIGHT DECREASED [None]
